FAERS Safety Report 8586389-0 (Version None)
Quarter: 2012Q3

REPORT INFORMATION
  Report Type: 
  Country: None (occurrence: None)
  Receive Date: 20120810
  Receipt Date: 20120802
  Transmission Date: 20120928
  Serious: Yes (Hospitalization)
  Sender: FDA-Public Use
  Company Number: FR-PFIZER INC-2012194547

PATIENT
  Age: 60 Year
  Sex: Male

DRUGS (3)
  1. STRESAM [Suspect]
     Dosage: 50 MG, 2X/DAY
     Route: 048
     Dates: start: 20120130, end: 20120209
  2. PANTOPRAZOLE SODIUM [Suspect]
     Dosage: UNK
     Route: 048
     Dates: start: 20120130, end: 20120209
  3. ASPIRIN [Suspect]
     Dosage: 1 G, SINGLE
     Route: 048
     Dates: start: 20120208, end: 20120208

REACTIONS (1)
  - DERMATITIS EXFOLIATIVE [None]
